FAERS Safety Report 13442686 (Version 1)
Quarter: 2017Q2

REPORT INFORMATION
  Report Type: Spontaneous
  Country: US (occurrence: US)
  Receive Date: 20170413
  Receipt Date: 20170413
  Transmission Date: 20170830
  Serious: Yes (Life-Threatening, Hospitalization)
  Sender: FDA-Public Use
  Company Number: None

PATIENT
  Age: 86 Year
  Sex: Male
  Weight: 118.8 kg

DRUGS (1)
  1. XARELTO [Suspect]
     Active Substance: RIVAROXABAN
     Indication: ATRIAL FIBRILLATION
     Dates: start: 20161001, end: 20170412

REACTIONS (4)
  - Pulmonary embolism [None]
  - Fall [None]
  - Musculoskeletal disorder [None]
  - Drug dose omission [None]

NARRATIVE: CASE EVENT DATE: 20170412
